FAERS Safety Report 19377674 (Version 1)
Quarter: 2021Q2

REPORT INFORMATION
  Report Type: Spontaneous
  Country: US (occurrence: US)
  Receive Date: 20210604
  Receipt Date: 20210604
  Transmission Date: 20210717
  Serious: No
  Sender: FDA-Public Use
  Company Number: US-REGENERON PHARMACEUTICALS, INC.-2020-79037

PATIENT

DRUGS (1)
  1. LIBTAYO [Suspect]
     Active Substance: CEMIPLIMAB-RWLC
     Indication: SQUAMOUS CELL CARCINOMA OF SKIN
     Dosage: 350 MG, Q3W
     Route: 042
     Dates: start: 20200508

REACTIONS (12)
  - Herpes zoster [Unknown]
  - Fall [Unknown]
  - Therapeutic product effect decreased [Unknown]
  - Dizziness [Not Recovered/Not Resolved]
  - Fatigue [Not Recovered/Not Resolved]
  - Pain [Unknown]
  - Pruritus [Unknown]
  - Hypoaesthesia [Unknown]
  - Alopecia [Unknown]
  - Rash macular [Not Recovered/Not Resolved]
  - Back injury [Unknown]
  - Skin reaction [Unknown]
